FAERS Safety Report 15593114 (Version 4)
Quarter: 2019Q2

REPORT INFORMATION
  Report Type: Spontaneous
  Country: US (occurrence: US)
  Receive Date: 20181106
  Receipt Date: 20190424
  Transmission Date: 20190711
  Serious: Yes (Hospitalization, Other)
  Sender: FDA-Public Use
  Company Number: US-PFIZER INC-2018447361

PATIENT
  Age: 71 Year
  Sex: Male

DRUGS (1)
  1. HEPARIN SODIUM. [Suspect]
     Active Substance: HEPARIN SODIUM
     Indication: PULMONARY EMBOLISM
     Dosage: UNK
     Route: 042

REACTIONS (4)
  - Drug hypersensitivity [Unknown]
  - Drug ineffective [Recovered/Resolved]
  - Thrombocytopenia [Unknown]
  - Blood disorder [Unknown]

NARRATIVE: CASE EVENT DATE: 20130302
